FAERS Safety Report 20195830 (Version 1)
Quarter: 2021Q4

REPORT INFORMATION
  Report Type: Spontaneous
  Country: CO (occurrence: CO)
  Receive Date: 20211216
  Receipt Date: 20211216
  Transmission Date: 20220303
  Serious: Yes (Other)
  Sender: FDA-Public Use
  Company Number: CO-PFIZER INC-202101732446

PATIENT
  Age: 78 Year
  Sex: Female

DRUGS (1)
  1. LYRICA [Suspect]
     Active Substance: PREGABALIN
     Dosage: UNK
     Route: 048
     Dates: start: 20200121

REACTIONS (6)
  - Gait inability [Unknown]
  - Illness [Unknown]
  - Discomfort [Unknown]
  - Dizziness [Unknown]
  - Nervousness [Unknown]
  - X-ray abnormal [Unknown]

NARRATIVE: CASE EVENT DATE: 20210101
